FAERS Safety Report 5117949-7 (Version None)
Quarter: 2006Q3

REPORT INFORMATION
  Report Type: 
  Country: None (occurrence: None)
  Receive Date: 20060925
  Receipt Date: 20060913
  Transmission Date: 20061208
  Serious: Yes (Hospitalization)
  Sender: FDA-Public Use
  Company Number: 2006SP001511

PATIENT
  Sex: Male

DRUGS (2)
  1. PEG-INTRON [Suspect]
     Indication: HEPATITIS C
     Dosage: 100 MCG;QW;SC
     Route: 058
     Dates: start: 20051017, end: 20060207
  2. REBETOL [Suspect]
     Indication: HEPATITIS C
     Dosage: 800 MG;QD;PO
     Route: 048
     Dates: start: 20051017, end: 20060207

REACTIONS (5)
  - ABSCESS [None]
  - C-REACTIVE PROTEIN INCREASED [None]
  - CHEST PAIN [None]
  - INTERCOSTAL NEURALGIA [None]
  - INTERVERTEBRAL DISC DISORDER [None]
